FAERS Safety Report 8622703-5 (Version None)
Quarter: 2012Q3

REPORT INFORMATION
  Report Type: 
  Country: None (occurrence: None)
  Receive Date: 20120827
  Receipt Date: 20120815
  Transmission Date: 20120928
  Serious: Yes (Hospitalization)
  Sender: FDA-Public Use
  Company Number: US-BAYER-201036917NA

PATIENT
  Age: 31 Year
  Sex: Female
  Weight: 108.84 kg

DRUGS (23)
  1. DROSPIRENONE AND ETHINYL ESTRADIOL [Suspect]
     Indication: CONTRACEPTION
     Dosage: UNK
     Route: 048
     Dates: start: 20080601, end: 20090901
  2. AUGMENTIN '500' [Concomitant]
     Route: 048
  3. PROMETHAZINE [Concomitant]
     Indication: KNEE OPERATION
     Dosage: 25 MG, UNK
     Route: 048
     Dates: start: 20080913, end: 20081001
  4. YASMIN [Suspect]
     Indication: ACNE
  5. YASMIN [Suspect]
     Indication: PREMENSTRUAL SYNDROME
  6. ASPIRIN [Concomitant]
     Indication: KNEE OPERATION
     Dosage: UNK UNK, QD
     Route: 048
  7. YASMIN [Suspect]
     Indication: CONTRACEPTION
     Dosage: UNK
     Route: 048
     Dates: start: 20030101, end: 20080601
  8. DROSPIRENONE AND ETHINYL ESTRADIOL [Suspect]
     Indication: PREMENSTRUAL SYNDROME
  9. HYCODAN [Concomitant]
  10. XANAX [Concomitant]
  11. DROSPIRENONE AND ETHINYL ESTRADIOL [Suspect]
     Indication: POLYCYSTIC OVARIES
  12. CEFTIN [Concomitant]
     Dosage: 500 MG, UNK
     Route: 048
  13. DROSPIRENONE AND ETHINYL ESTRADIOL [Suspect]
     Indication: ACNE
  14. METFORMIN HCL [Concomitant]
     Indication: POLYCYSTIC OVARIES
     Dosage: UNK
     Route: 048
     Dates: start: 20040101
  15. SUMATRIPTAN [Concomitant]
     Dosage: 100 MG, UNK
     Route: 048
  16. DOXYCYCLINE HCL [Concomitant]
     Indication: BRONCHITIS
     Dosage: 100 MG, BID
     Route: 048
     Dates: start: 20081018, end: 20081028
  17. YASMIN [Suspect]
     Indication: POLYCYSTIC OVARIES
  18. OXYCODONE HCL AND ACETAMINOPHEN [Concomitant]
     Indication: PROCEDURAL PAIN
     Dosage: 325 MG, Q4HR
     Route: 048
     Dates: start: 20080923
  19. OXYCODONE HCL AND ACETAMINOPHEN [Concomitant]
     Dosage: 325 MG, QID
     Route: 048
     Dates: start: 20080923
  20. AZITHROMYCIN [Concomitant]
     Indication: BRONCHITIS
     Dosage: 250 MG, UNK
     Route: 048
     Dates: start: 20081009, end: 20081013
  21. XYZAL [Concomitant]
  22. ALPRAZOLAM [Concomitant]
     Indication: ANXIETY
     Dosage: UNK
     Route: 048
     Dates: start: 20070101
  23. PROPOXYPHENE HCL [Concomitant]
     Indication: PROCEDURAL PAIN
     Dosage: UNK UNK, PRN
     Route: 048
     Dates: start: 20081001, end: 20081101

REACTIONS (7)
  - PULMONARY EMBOLISM [None]
  - MALAISE [None]
  - PAIN [None]
  - DYSPNOEA [None]
  - LUNG DISORDER [None]
  - FATIGUE [None]
  - RESPIRATORY TRACT CONGESTION [None]
